FAERS Safety Report 12640751 (Version 1)
Quarter: 2016Q3

REPORT INFORMATION
  Report Type: Spontaneous
  Country: US (occurrence: US)
  Receive Date: 20160810
  Receipt Date: 20160810
  Transmission Date: 20161109
  Serious: No
  Sender: FDA-Public Use
  Company Number: US-BEH-2016072033

PATIENT
  Sex: Female
  Weight: 27.21 kg

DRUGS (22)
  1. VITAMIN C [Concomitant]
     Active Substance: ASCORBIC ACID
  2. QVAR [Concomitant]
     Active Substance: BECLOMETHASONE DIPROPIONATE
  3. DIPHENHYDRAMINE. [Concomitant]
     Active Substance: DIPHENHYDRAMINE
  4. LMX                                /00033401/ [Concomitant]
  5. FERROUS SULFATE. [Concomitant]
     Active Substance: FERROUS SULFATE
  6. RIBOFLAVIN [Concomitant]
     Active Substance: RIBOFLAVIN
  7. HIZENTRA [Suspect]
     Active Substance: HUMAN IMMUNOGLOBULIN G
     Indication: MITOCHONDRIAL MYOPATHY
  8. IBUPROFEN. [Concomitant]
     Active Substance: IBUPROFEN
  9. CARNITOR [Concomitant]
     Active Substance: LEVOCARNITINE
  10. PREVACID [Concomitant]
     Active Substance: LANSOPRAZOLE
  11. HIZENTRA [Suspect]
     Active Substance: HUMAN IMMUNOGLOBULIN G
     Indication: GLYCOGEN STORAGE DISORDER
     Dosage: 3 G, QW
     Route: 058
     Dates: start: 20151109
  12. HIZENTRA [Suspect]
     Active Substance: HUMAN IMMUNOGLOBULIN G
     Indication: IMMUNODEFICIENCY COMMON VARIABLE
  13. POLY-VI-SOL WITH IRON [Concomitant]
  14. ZYRTEC [Concomitant]
     Active Substance: CETIRIZINE HYDROCHLORIDE
  15. EPIPEN JR [Concomitant]
     Active Substance: EPINEPHRINE
  16. ALPHA LIPOIC ACID [Concomitant]
     Active Substance: .ALPHA.-LIPOIC ACID
  17. FLONASE [Concomitant]
     Active Substance: FLUTICASONE PROPIONATE
  18. CORN STARCH [Concomitant]
     Active Substance: STARCH, CORN
  19. VITAMIN D3 [Concomitant]
     Active Substance: CHOLECALCIFEROL
  20. MIRALAX [Concomitant]
     Active Substance: POLYETHYLENE GLYCOL 3350
  21. PULMICORT TURBUHALER [Concomitant]
     Active Substance: BUDESONIDE
  22. COENZYME Q10 [Concomitant]
     Active Substance: UBIDECARENONE

REACTIONS (2)
  - Candida infection [Unknown]
  - Sinusitis [Unknown]
